FAERS Safety Report 6938477-X (Version None)
Quarter: 2010Q3

REPORT INFORMATION
  Report Type: 
  Country: None (occurrence: None)
  Receive Date: 20100824
  Receipt Date: 20100812
  Transmission Date: 20110219
  Serious: Yes (Other)
  Sender: FDA-Public Use
  Company Number: GB-SANOFI-AVENTIS-2010SA032816

PATIENT
  Age: 67 Year
  Sex: Male
  Weight: 94 kg

DRUGS (4)
  1. MULTAQ [Suspect]
     Indication: ATRIAL FIBRILLATION
     Route: 048
     Dates: start: 20100507
  2. ACYCLOVIR SODIUM [Concomitant]
     Indication: HERPES SIMPLEX
     Route: 048
     Dates: start: 20100128, end: 20100228
  3. FLUTICASONE PROPIONATE/SALMETEROL [Concomitant]
     Indication: ASTHMA
     Route: 055
     Dates: start: 19950408
  4. WARFARIN [Concomitant]
     Indication: ATRIAL FIBRILLATION
     Route: 048
     Dates: start: 20100201

REACTIONS (2)
  - DYSPNOEA [None]
  - HAEMATOMA [None]
